FAERS Safety Report 9262566 (Version 2)
Quarter: 2015Q1

REPORT INFORMATION
  Report Type: Spontaneous
  Country: FR (occurrence: FR)
  Receive Date: 20130430
  Receipt Date: 20150321
  Transmission Date: 20150721
  Serious: Yes (Hospitalization)
  Sender: FDA-Public Use
  Company Number: FR-AMGEN-FRASP2013028207

PATIENT
  Age: 75 Year
  Sex: Female

DRUGS (9)
  1. EPOETIN ZETA [Suspect]
     Active Substance: ERYTHROPOIETIN
     Indication: PRODUCT USED FOR UNKNOWN INDICATION
     Dosage: 3000 IU/0.75 ML
     Route: 065
     Dates: start: 20130301
  2. XELODA [Suspect]
     Active Substance: CAPECITABINE
     Indication: PRODUCT USED FOR UNKNOWN INDICATION
     Dosage: UNK
     Route: 065
     Dates: start: 20130211, end: 20130224
  3. MANTADIX [Concomitant]
     Active Substance: AMANTADINE HYDROCHLORIDE
  4. XGEVA [Suspect]
     Active Substance: DENOSUMAB
     Indication: BREAST CANCER METASTATIC
     Dosage: 120 MG, UNK
     Route: 065
     Dates: start: 20130205, end: 20130305
  5. MODOPAR [Concomitant]
     Active Substance: BENSERAZIDE HYDROCHLORIDE\LEVODOPA
  6. TRIVASTAL                          /00397201/ [Concomitant]
     Active Substance: PIRIBEDIL
  7. DAFALGAN [Concomitant]
     Active Substance: ACETAMINOPHEN
  8. PANTOPRAZOLE [Concomitant]
     Active Substance: PANTOPRAZOLE SODIUM
  9. TOPALGIC                           /00599202/ [Concomitant]
     Active Substance: TRAMADOL

REACTIONS (1)
  - Supraventricular tachycardia [Recovered/Resolved]

NARRATIVE: CASE EVENT DATE: 20130301
